FAERS Safety Report 8790772 (Version 1)
Quarter: 2012Q4

REPORT INFORMATION
  Report Type: Spontaneous
  Country: US (occurrence: None)
  Receive Date: 20120913
  Receipt Date: 20120913
  Transmission Date: 20130627
  Serious: Yes (Life-Threatening, Other)
  Sender: FDA-Public Use
  Company Number: None

PATIENT
  Age: 29 Year
  Sex: Female
  Weight: 145.15 kg

DRUGS (2)
  1. SERTRALINE [Suspect]
     Indication: DEPRESSION
     Route: 048
     Dates: start: 20120901, end: 20120912
  2. SERTRALINE [Suspect]
     Indication: GENERALIZED ANXIETY DISORDER
     Route: 048
     Dates: start: 20120901, end: 20120912

REACTIONS (7)
  - Migraine [None]
  - Pyrexia [None]
  - Decreased appetite [None]
  - Confusional state [None]
  - Product quality issue [None]
  - Withdrawal syndrome [None]
  - Tremor [None]
